FAERS Safety Report 19233463 (Version 1)
Quarter: 2021Q2

REPORT INFORMATION
  Report Type: Spontaneous
  Country: NO (occurrence: NO)
  Receive Date: 20210507
  Receipt Date: 20210507
  Transmission Date: 20210717
  Serious: Yes (Hospitalization)
  Sender: FDA-Public Use
  Company Number: NO-GLAXOSMITHKLINE-NO2021097495

PATIENT
  Age: 42 Year
  Sex: Female

DRUGS (4)
  1. NARAMIG [Suspect]
     Active Substance: NARATRIPTAN HYDROCHLORIDE
     Indication: MIGRAINE
     Dosage: 2.5 G (2.5 GR X2 2?3 TIMES A WEEK)
     Route: 048
     Dates: start: 2020, end: 202103
  2. EMGALITY [Concomitant]
     Active Substance: GALCANEZUMAB-GNLM
     Indication: MIGRAINE
     Dosage: ONE DOSE PER 4 WEEKS
     Route: 065
     Dates: start: 2021
  3. SUMATRIPTAN SUCCINATE. [Suspect]
     Active Substance: SUMATRIPTAN SUCCINATE
     Indication: MIGRAINE
     Dosage: 12 MG (12 MG 2?3 TIMES A WEEK)
     Route: 065
     Dates: start: 2017, end: 202103
  4. SUMATRIPTAN SUCCINATE. [Suspect]
     Active Substance: SUMATRIPTAN SUCCINATE

REACTIONS (2)
  - Faecal calprotectin increased [Recovered/Resolved]
  - Gastrointestinal inflammation [Recovered/Resolved]
